FAERS Safety Report 8494836-8 (Version None)
Quarter: 2012Q3

REPORT INFORMATION
  Report Type: 
  Country: None (occurrence: None)
  Receive Date: 20120709
  Receipt Date: 20120629
  Transmission Date: 20120928
  Serious: Yes (Other)
  Sender: FDA-Public Use
  Company Number: GB-JNJFOC-20111104117

PATIENT
  Sex: Male

DRUGS (5)
  1. REMICADE [Suspect]
     Indication: CROHN'S DISEASE
     Route: 042
     Dates: start: 20110908
  2. CHLORPHENIRAMINE TAB [Concomitant]
     Indication: PREMEDICATION
     Route: 042
     Dates: start: 20110929
  3. HYDROCORTISONE [Concomitant]
     Indication: PREMEDICATION
     Route: 042
     Dates: start: 20110929
  4. REMICADE [Suspect]
     Dosage: SECOND DOSE
     Route: 042
     Dates: start: 20110929, end: 20110929
  5. THIOGUANINE [Concomitant]
     Indication: CROHN'S DISEASE
     Route: 065
     Dates: start: 20030101

REACTIONS (9)
  - DYSPNOEA [None]
  - TACHYCARDIA [None]
  - NAUSEA [None]
  - HEADACHE [None]
  - BLOOD PRESSURE INCREASED [None]
  - CHEST PAIN [None]
  - FEELING HOT [None]
  - PALPITATIONS [None]
  - INFUSION RELATED REACTION [None]
